FAERS Safety Report 6040750-7 (Version None)
Quarter: 2009Q1

REPORT INFORMATION
  Report Type: 
  Country: None (occurrence: None)
  Receive Date: 20090116
  Receipt Date: 20080519
  Transmission Date: 20090719
  Serious: No
  Sender: FDA-Public Use
  Company Number: US-BRISTOL-MYERS SQUIBB COMPANY-14196976

PATIENT
  Age: 39 Year
  Sex: Female
  Weight: 111 kg

DRUGS (3)
  1. ABILIFY [Suspect]
     Indication: DEPRESSION
     Dates: start: 20080101
  2. PROVIGIL [Concomitant]
  3. EFFEXOR [Concomitant]

REACTIONS (5)
  - DIZZINESS [None]
  - HYPERHIDROSIS [None]
  - NAUSEA [None]
  - OEDEMA PERIPHERAL [None]
  - VOMITING [None]
